FAERS Safety Report 5006571-9 (Version None)
Quarter: 2006Q2

REPORT INFORMATION
  Report Type: 
  Country: None (occurrence: None)
  Receive Date: 20060519
  Receipt Date: 20060314
  Transmission Date: 20061013
  Serious: Yes (Other)
  Sender: FDA-Public Use
  Company Number: 2006UW04378

PATIENT
  Age: 47 Year
  Sex: Female
  Weight: 95 kg

DRUGS (2)
  1. NEXIUM [Suspect]
     Indication: GASTROOESOPHAGEAL REFLUX DISEASE
     Route: 048
     Dates: start: 20050101, end: 20060301
  2. BACTRIM [Interacting]
     Indication: URINARY TRACT INFECTION

REACTIONS (5)
  - BURNING SENSATION [None]
  - CYSTITIS [None]
  - DRUG INTERACTION [None]
  - URINARY TRACT INFECTION [None]
  - URTICARIA [None]
